FAERS Safety Report 9051931 (Version 1)
Quarter: 2013Q1

REPORT INFORMATION
  Report Type: Spontaneous
  Country: DE (occurrence: DE)
  Receive Date: 20130207
  Receipt Date: 20130207
  Transmission Date: 20140127
  Serious: Yes (Other)
  Sender: FDA-Public Use
  Company Number: DE-JNJFOC-20130112504

PATIENT
  Age: 72 None
  Sex: Male
  Weight: 70 kg

DRUGS (2)
  1. XARELTO [Suspect]
     Indication: ATRIAL FIBRILLATION
     Route: 048
     Dates: start: 20130116, end: 20130117
  2. XARELTO [Suspect]
     Indication: CEREBROVASCULAR ACCIDENT
     Route: 048
     Dates: start: 20130116, end: 20130117

REACTIONS (3)
  - Gamma-glutamyltransferase increased [Recovered/Resolved]
  - Blood creatinine increased [Recovered/Resolved]
  - Off label use [Unknown]
